FAERS Safety Report 16806691 (Version 1)
Quarter: 2019Q3

REPORT INFORMATION
  Report Type: Spontaneous
  Country: IT (occurrence: IT)
  Receive Date: 20190913
  Receipt Date: 20190913
  Transmission Date: 20191005
  Serious: Yes (Hospitalization)
  Sender: FDA-Public Use
  Company Number: IT-ASTRAZENECA-2019SF26885

PATIENT
  Age: 60 Year
  Sex: Female

DRUGS (7)
  1. CEFTRIAXONE. [Suspect]
     Active Substance: CEFTRIAXONE
     Indication: INFECTION
     Route: 042
     Dates: start: 20190614
  2. CARDICOR [Concomitant]
     Active Substance: BISOPROLOL
  3. TRIATEC [Concomitant]
  4. LUVION [Concomitant]
  5. BRILIQUE [Suspect]
     Active Substance: TICAGRELOR
     Indication: ATRIAL FIBRILLATION
     Route: 048
     Dates: start: 20190614
  6. LASIX [Concomitant]
     Active Substance: FUROSEMIDE
  7. SOLUBLE URBASON [Concomitant]

REACTIONS (2)
  - Azotaemia [Recovering/Resolving]
  - Hypercreatinaemia [Recovering/Resolving]

NARRATIVE: CASE EVENT DATE: 20190629
